FAERS Safety Report 12576032 (Version 2)
Quarter: 2016Q3

REPORT INFORMATION
  Report Type: Report from Study
  Country: BR (occurrence: BR)
  Receive Date: 20160720
  Receipt Date: 20160802
  Transmission Date: 20161109
  Serious: Yes (Other)
  Sender: FDA-Public Use
  Company Number: PHHY2016BR098809

PATIENT
  Sex: Female
  Weight: 74 kg

DRUGS (8)
  1. ACLASTA [Suspect]
     Active Substance: ZOLEDRONIC ACID
     Indication: OSTEOPOROSIS
     Dosage: 5 MG, EVERY 2 YEARS
     Route: 042
  2. ISOFLAVON [Concomitant]
     Indication: UTERINE OPERATION
  3. VITAX D3 [Concomitant]
     Indication: VITAMIN D DEFICIENCY
     Dosage: 10 DF, QD (4 YEARS AGO)
     Route: 048
  4. ISOFLAVON [Concomitant]
     Indication: OOPHORECTOMY
  5. OMEGA 3 [Concomitant]
     Active Substance: OMEGA-3 FATTY ACIDS
     Indication: PRODUCT USED FOR UNKNOWN INDICATION
     Dosage: 2 DF, QD (1 YEAR AGO)
     Route: 048
  6. ACLASTA [Suspect]
     Active Substance: ZOLEDRONIC ACID
     Indication: PROPHYLAXIS
     Dosage: 1 DF, Q2MO (4 YEARS AG)
     Route: 065
  7. ISOFLAVON [Concomitant]
     Indication: HORMONE REPLACEMENT THERAPY
     Dosage: 2 DF, QD (6 YEARS AGO)
     Route: 048
  8. GLICOLIVE [Concomitant]
     Indication: OSTEOARTHRITIS
     Dosage: 1 DF, QD (3 YEARS AGO)
     Route: 048

REACTIONS (3)
  - Inappropriate schedule of drug administration [Unknown]
  - Cataract [Recovered/Resolved]
  - Visual impairment [Recovered/Resolved]
